FAERS Safety Report 7481041-7 (Version None)
Quarter: 2011Q2

REPORT INFORMATION
  Report Type: 
  Country: None (occurrence: None)
  Receive Date: 20110516
  Receipt Date: 20090306
  Transmission Date: 20111010
  Serious: Yes (Other)
  Sender: FDA-Public Use
  Company Number: US-BAYER-200914495NA

PATIENT
  Age: 78 Year
  Sex: Female
  Weight: 82 kg

DRUGS (28)
  1. TRASYLOL [Suspect]
     Indication: AORTIC VALVE REPLACEMENT
     Dosage: 200 ML ONCE (LOADING)
     Route: 042
     Dates: start: 20060825, end: 20060825
  2. PRAVACHOL [Concomitant]
     Dosage: 20 MG, HS
  3. LORAZEPAM [Concomitant]
     Dosage: 0.5 MG, TID
  4. FOLIC ACID [Concomitant]
  5. FENTANYL [Concomitant]
     Dosage: 50 MG/HR
     Route: 042
     Dates: start: 20060825
  6. MIDAZOLAM HCL [Concomitant]
     Dosage: UNK
     Dates: start: 20060825
  7. NAPROSYN [Concomitant]
     Dosage: 440 MG, QD
  8. LORAZEPAM [Concomitant]
     Dosage: 2 MG, HS
  9. HYOSCYAMINE [Concomitant]
     Dosage: 0.125 MG, TID
  10. VASOPRESSIN [VASOPRESSIN] [Concomitant]
     Dosage: UNK
     Dates: start: 20060825
  11. PREDNISONE [Concomitant]
     Dosage: 300 MG, UNK
     Dates: start: 20060825
  12. CEFTRIAXONE [Concomitant]
     Dosage: 1.5 G, UNK
     Dates: start: 20060825
  13. PROCRIT [Concomitant]
     Dosage: WEEKLY INJECTION
  14. PRILOSEC [Concomitant]
     Dosage: 20 MG, QD
  15. SUCCINYLCHOLINE CHLORIDE [Concomitant]
     Dosage: UNK
     Route: 042
     Dates: start: 20060825
  16. PROTAMINE SULFATE [Concomitant]
     Dosage: UNK
     Dates: start: 20060825
  17. PLATELETS [Concomitant]
     Dosage: 1 U, UNK
     Route: 042
     Dates: start: 20060825, end: 20060825
  18. STARLIX [Concomitant]
     Dosage: 120 MG, TID
     Dates: start: 20040101
  19. SENNATAB [Concomitant]
     Dosage: 2 TABLETS, QHS
  20. NORVASC [Concomitant]
     Dosage: 10 MG, QD
  21. TRASYLOL [Suspect]
     Indication: CORONARY ARTERY BYPASS
     Dosage: 1 ML, ONCE (INITIAL)
     Route: 042
     Dates: start: 20060825, end: 20060825
  22. TRASYLOL [Suspect]
     Dosage: 50 ML/HR (INFUSION)
     Route: 042
     Dates: start: 20060825, end: 20060825
  23. TRASYLOL [Suspect]
     Dosage: 150 ML/HR (INITIAL INFUSION)
     Route: 042
     Dates: start: 20060825, end: 20060825
  24. HEPARIN [Concomitant]
     Dosage: UNK
     Dates: start: 20060825
  25. RED BLOOD CELLS, CONCENTRATED [Concomitant]
     Dosage: 5 U, UNK
     Route: 042
     Dates: start: 20060825, end: 20060825
  26. ACETYLSALICYLIC ACID SRT [Concomitant]
     Dosage: 81 MG, QD
  27. CELEBREX [Concomitant]
     Dosage: 200 MG, QD (LONG TERM USE)
  28. INSULIN [INSULIN] [Concomitant]
     Dosage: UNK
     Dates: start: 20060825

REACTIONS (12)
  - STRESS [None]
  - RENAL IMPAIRMENT [None]
  - EMOTIONAL DISTRESS [None]
  - INJURY [None]
  - RENAL FAILURE [None]
  - RENAL INJURY [None]
  - ANXIETY [None]
  - PAIN [None]
  - UNEVALUABLE EVENT [None]
  - ANHEDONIA [None]
  - MULTI-ORGAN FAILURE [None]
  - FEAR [None]
